FAERS Safety Report 9419409 (Version 1)
Quarter: 2013Q3

REPORT INFORMATION
  Report Type: Spontaneous
  Country: FR (occurrence: FR)
  Receive Date: 20130725
  Receipt Date: 20130725
  Transmission Date: 20140515
  Serious: Yes (Hospitalization)
  Sender: FDA-Public Use
  Company Number: FR-SANOFI-AVENTIS-2013SA073367

PATIENT
  Age: 75 Year
  Sex: Male

DRUGS (2)
  1. RIFADINE [Suspect]
     Indication: SKIN INFECTION
     Dosage: STRENGTH: 600 MG
     Route: 042
     Dates: start: 20130628, end: 20130708
  2. CEFAZOLIN [Suspect]
     Indication: SKIN INFECTION
     Route: 042
     Dates: start: 20130628

REACTIONS (1)
  - Vascular purpura [Not Recovered/Not Resolved]
